FAERS Safety Report 20083338 (Version 1)
Quarter: 2021Q4

REPORT INFORMATION
  Report Type: Spontaneous
  Country: PL (occurrence: PL)
  Receive Date: 20211117
  Receipt Date: 20211117
  Transmission Date: 20220303
  Serious: Yes (Life-Threatening, Other)
  Sender: FDA-Public Use
  Company Number: None

PATIENT
  Age: 21 Year
  Weight: 60 kg

DRUGS (2)
  1. TRAMADOL [Suspect]
     Active Substance: TRAMADOL
     Indication: Product used for unknown indication
     Dosage: ON 20.01.2021 OR 21.01.2021 DRUGS (PARACETAMOL AND TRAMADOL) TAKEN WITH ETHANOL
     Route: 048
     Dates: start: 202101
  2. ACETAMINOPHEN [Suspect]
     Active Substance: ACETAMINOPHEN
     Indication: Product used for unknown indication
     Dosage: ON 20.01.2021 OR 21.01.2021 DRUGS (PARACETAMOL AND TRAMADOL) TAKEN WITH ETHANOL
     Route: 048
     Dates: start: 202101

REACTIONS (3)
  - Toxicity to various agents [Unknown]
  - Suicide attempt [Unknown]
  - Drug abuse [Unknown]
